FAERS Safety Report 6283187-8 (Version None)
Quarter: 2009Q3

REPORT INFORMATION
  Report Type: 
  Country: None (occurrence: None)
  Receive Date: 20090724
  Receipt Date: 20090714
  Transmission Date: 20100115
  Serious: Yes (Hospitalization)
  Sender: FDA-Public Use
  Company Number: B0585107A

PATIENT
  Sex: Female

DRUGS (5)
  1. LANOXIN [Suspect]
     Indication: ATRIAL FIBRILLATION
     Dosage: .125MG PER DAY
     Route: 048
     Dates: start: 20090403, end: 20090622
  2. CARVEDILOL [Concomitant]
     Route: 065
  3. FRUSEMIDE [Concomitant]
     Route: 065
  4. COUMADIN [Concomitant]
     Route: 065
  5. GLYCERYL TRINITRATE [Concomitant]
     Route: 065

REACTIONS (2)
  - BRADYCARDIA [None]
  - LOSS OF CONSCIOUSNESS [None]
